FAERS Safety Report 17115382 (Version 1)
Quarter: 2019Q4

REPORT INFORMATION
  Report Type: Spontaneous
  Country: US (occurrence: US)
  Receive Date: 20191205
  Receipt Date: 20191205
  Transmission Date: 20200122
  Serious: Yes (Hospitalization)
  Sender: FDA-Public Use
  Company Number: US-MYLANLABS-2019M1118587

PATIENT
  Age: 15 Year
  Sex: Female
  Weight: 67.2 kg

DRUGS (5)
  1. SODIUM BICARBONATE. [Concomitant]
     Active Substance: SODIUM BICARBONATE
     Indication: ELECTROCARDIOGRAM QRS COMPLEX PROLONGED
     Dosage: 50 MILLIEQUIVALENT
     Route: 042
  2. BUPROPION. [Suspect]
     Active Substance: BUPROPION
     Indication: PRODUCT USED FOR UNKNOWN INDICATION
     Dosage: ESTIMATED DOSE 1650 TO 9000MG (24-133MG/KG); EXTENDED-RELEASE TABLETS
     Route: 048
  3. SALINE                             /00075401/ [Concomitant]
     Active Substance: SODIUM CHLORIDE
     Dosage: 20 ML/KG
     Route: 042
  4. LORAZEPAM. [Concomitant]
     Active Substance: LORAZEPAM
     Indication: GENERALISED TONIC-CLONIC SEIZURE
     Dosage: 2 MG (0.02MG/KG)
     Route: 042
  5. INTRALIPID                         /01648802/ [Suspect]
     Active Substance: SOYBEAN OIL
     Indication: OVERDOSE
     Dosage: FIRST DOSE: 1.5 ML/KG; SECOND DOSE: 1.5 ML/KG OVER 30 MINUTES
     Route: 042

REACTIONS (16)
  - Myoclonus [Recovered/Resolved]
  - Metabolic acidosis [Recovered/Resolved]
  - Vomiting [Recovered/Resolved]
  - Electrocardiogram QRS complex prolonged [Recovered/Resolved]
  - Intentional overdose [Recovered/Resolved]
  - Mental status changes [Recovered/Resolved]
  - Generalised tonic-clonic seizure [Recovered/Resolved]
  - Dysarthria [Recovered/Resolved]
  - Transaminases increased [Recovered/Resolved]
  - Prescription drug used without a prescription [Recovered/Resolved]
  - Sinus tachycardia [Recovered/Resolved]
  - Somnolence [Recovered/Resolved]
  - Electrocardiogram QT prolonged [Recovered/Resolved]
  - Respiratory alkalosis [Recovered/Resolved]
  - Pyrexia [Recovered/Resolved]
  - False positive investigation result [Recovered/Resolved]
